FAERS Safety Report 25678063 (Version 1)
Quarter: 2025Q3

REPORT INFORMATION
  Report Type: Spontaneous
  Country: GB (occurrence: US)
  Receive Date: 20250813
  Receipt Date: 20250813
  Transmission Date: 20251021
  Serious: Yes (Hospitalization)
  Sender: NOVO NORDISK
  Company Number: GB-NOVOPROD-1498541

PATIENT
  Age: 58 Year
  Sex: Female
  Weight: 82.54 kg

DRUGS (2)
  1. OZEMPIC [Suspect]
     Active Substance: SEMAGLUTIDE
     Dates: start: 202507, end: 202507
  2. OZEMPIC [Suspect]
     Active Substance: SEMAGLUTIDE
     Indication: Weight control
     Dates: start: 202504, end: 2025

REACTIONS (5)
  - Syncope [Recovered/Resolved]
  - Appendicitis perforated [Recovered/Resolved with Sequelae]
  - Internal haemorrhage [Recovered/Resolved]
  - Dyspepsia [Recovered/Resolved]
  - Off label use [Recovered/Resolved]

NARRATIVE: CASE EVENT DATE: 20250401
